FAERS Safety Report 7736836-9 (Version None)
Quarter: 2011Q3

REPORT INFORMATION
  Report Type: 
  Country: None (occurrence: None)
  Receive Date: 20110908
  Receipt Date: 20110908
  Transmission Date: 20111222
  Serious: Yes (Life-Threatening)
  Sender: FDA-Public Use
  Company Number: None

PATIENT
  Age: 53 Year
  Sex: Female
  Weight: 87.089 kg

DRUGS (3)
  1. PREDNISONE [Concomitant]
     Indication: UPPER RESPIRATORY TRACT INFECTION
     Dosage: 2 TABLETS A DAY FOR 5 DAYS
     Route: 048
     Dates: start: 20110823, end: 20110828
  2. AZITHROMYCIN [Suspect]
     Indication: UPPER RESPIRATORY TRACT INFECTION
     Dosage: 2 ON DAY 1, THEN 1 DAY 2-5
     Route: 048
     Dates: start: 20110823, end: 20110829
  3. ROBITUSSIN PEAK COLD, COUPH + CHEST CONGESTION DM [Concomitant]
     Route: 048

REACTIONS (18)
  - SPEECH DISORDER [None]
  - ABDOMINAL PAIN UPPER [None]
  - PRURITUS [None]
  - ASTHENIA [None]
  - TREMOR [None]
  - RASH [None]
  - NAUSEA [None]
  - URTICARIA [None]
  - CONTUSION [None]
  - FLUSHING [None]
  - MUSCLE STRAIN [None]
  - DIZZINESS [None]
  - MASS [None]
  - DISORIENTATION [None]
  - FEELING ABNORMAL [None]
  - LOSS OF CONSCIOUSNESS [None]
  - HYPERHIDROSIS [None]
  - BLISTER [None]
